FAERS Safety Report 11823921 (Version 2)
Quarter: 2015Q4

REPORT INFORMATION
  Report Type: Spontaneous
  Country: US (occurrence: US)
  Receive Date: 20151210
  Receipt Date: 20151214
  Transmission Date: 20160305
  Serious: Yes (Hospitalization)
  Sender: FDA-Public Use
  Company Number: US-SA-2015SA202862

PATIENT
  Age: 64 Year

DRUGS (2)
  1. AVAPRO [Suspect]
     Active Substance: IRBESARTAN
     Dosage: DOSE:75 UNIT(S)
     Route: 065
     Dates: start: 2012
  2. METFORMIN [Concomitant]
     Active Substance: METFORMIN HYDROCHLORIDE
     Indication: DIABETES MELLITUS

REACTIONS (2)
  - Glycosylated haemoglobin increased [Unknown]
  - Pneumonia [Unknown]

NARRATIVE: CASE EVENT DATE: 201501
